FAERS Safety Report 6996845-4 (Version None)
Quarter: 2010Q3

REPORT INFORMATION
  Report Type: 
  Country: None (occurrence: None)
  Receive Date: 20100918
  Receipt Date: 20090924
  Transmission Date: 20110219
  Serious: No
  Sender: FDA-Public Use
  Company Number: US-WYE-H10116309

PATIENT
  Sex: Female
  Weight: 95.79 kg

DRUGS (7)
  1. PRISTIQ [Suspect]
     Indication: ANXIETY
     Route: 048
     Dates: start: 20090709, end: 20090715
  2. PRISTIQ [Suspect]
     Route: 048
     Dates: start: 20090716
  3. PROTONIX [Concomitant]
  4. DETROL [Concomitant]
  5. LYRICA [Suspect]
     Dosage: UNKNOWN
     Dates: start: 20090709
  6. PROZAC [Concomitant]
  7. XANAX [Concomitant]

REACTIONS (4)
  - CONFUSIONAL STATE [None]
  - DIZZINESS [None]
  - FATIGUE [None]
  - HEADACHE [None]
